FAERS Safety Report 13549019 (Version 1)
Quarter: 2017Q2

REPORT INFORMATION
  Report Type: Spontaneous
  Country: US (occurrence: US)
  Receive Date: 20170515
  Receipt Date: 20170515
  Transmission Date: 20170830
  Serious: No
  Sender: FDA-Public Use
  Company Number: None

PATIENT
  Sex: Female

DRUGS (1)
  1. HUMIRA [Suspect]
     Active Substance: ADALIMUMAB
     Indication: RHEUMATOID ARTHRITIS
     Dosage: 40MG EVERY 10 DAYS SQ
     Route: 058
     Dates: start: 20140411, end: 20170511

REACTIONS (2)
  - Systemic lupus erythematosus [None]
  - Antinuclear antibody increased [None]
